FAERS Safety Report 4906181-5 (Version None)
Quarter: 2006Q1

REPORT INFORMATION
  Report Type: 
  Country: None (occurrence: None)
  Receive Date: 20060209
  Receipt Date: 20051121
  Transmission Date: 20060701
  Serious: Yes (Hospitalization)
  Sender: FDA-Public Use
  Company Number: FR-BRISTOL-MYERS SQUIBB COMPANY-13193198

PATIENT
  Age: 63 Year
  Sex: Female
  Weight: 44 kg

DRUGS (3)
  1. TAXOL [Suspect]
     Indication: ENDOMETRIAL CANCER
     Route: 042
     Dates: start: 20051108, end: 20051108
  2. CARBOPLATINE [Suspect]
     Indication: ENDOMETRIAL CANCER
     Route: 042
     Dates: start: 20051108, end: 20051108
  3. EFFERALGAN CODEINE [Concomitant]
     Route: 048
     Dates: start: 20051106

REACTIONS (4)
  - ALANINE AMINOTRANSFERASE INCREASED [None]
  - ASPARTATE AMINOTRANSFERASE INCREASED [None]
  - BACK PAIN [None]
  - CYTOLYTIC HEPATITIS [None]
